FAERS Safety Report 11852912 (Version 1)
Quarter: 2015Q4

REPORT INFORMATION
  Report Type: Spontaneous
  Country: US (occurrence: US)
  Receive Date: 20151218
  Receipt Date: 20151218
  Transmission Date: 20160305
  Serious: Yes (Other)
  Sender: FDA-Public Use
  Company Number: US-INCYTE CORPORATION-2015IN006585

PATIENT
  Sex: Female

DRUGS (1)
  1. JAKAFI [Suspect]
     Active Substance: RUXOLITINIB
     Dosage: 15 MG, TID
     Route: 048
     Dates: start: 20130716

REACTIONS (1)
  - Thrombosis [Unknown]
